FAERS Safety Report 5571386-X (Version None)
Quarter: 2007Q4

REPORT INFORMATION
  Report Type: 
  Country: None (occurrence: None)
  Receive Date: 20071221
  Receipt Date: 20070921
  Transmission Date: 20080405
  Serious: No
  Sender: FDA-Public Use
  Company Number: A0683554A

PATIENT
  Age: 33 Year
  Sex: Female

DRUGS (2)
  1. FLONASE [Suspect]
     Route: 045
     Dates: start: 20050101, end: 20050101
  2. NO CONCURRENT MEDICATION [Concomitant]

REACTIONS (2)
  - DISCOMFORT [None]
  - NASAL INFLAMMATION [None]
